FAERS Safety Report 8030318-5 (Version None)
Quarter: 2012Q1

REPORT INFORMATION
  Report Type: 
  Country: None (occurrence: None)
  Receive Date: 20120109
  Receipt Date: 20120104
  Transmission Date: 20120608
  Serious: Yes (Hospitalization)
  Sender: FDA-Public Use
  Company Number: PHEH2011US009808

PATIENT
  Sex: Male

DRUGS (2)
  1. EXJADE [Suspect]
     Indication: IRON OVERLOAD
     Dosage: 2000 MG, DAILY
     Route: 048
     Dates: start: 20071029, end: 20111116
  2. EXJADE [Suspect]
     Dosage: UNK
     Dates: start: 20111121

REACTIONS (4)
  - PYREXIA [None]
  - ANAEMIA [None]
  - SEPSIS [None]
  - LIVER FUNCTION TEST ABNORMAL [None]
